FAERS Safety Report 4585843-6 (Version None)
Quarter: 2005Q1

REPORT INFORMATION
  Report Type: 
  Country: None (occurrence: None)
  Receive Date: 20050214
  Receipt Date: 20050202
  Transmission Date: 20050727
  Serious: Yes (Life-Threatening, Hospitalization, Disabling, Other)
  Sender: FDA-Public Use
  Company Number: ES-2005-000809

PATIENT
  Age: 46 Year
  Sex: Male
  Weight: 85 kg

DRUGS (4)
  1. CAMPATH [Suspect]
     Indication: CHRONIC LYMPHOCYTIC LEUKAEMIA
     Dosage: 10 MG, 3X/WEEK, SUBCUTANEOUS
     Route: 058
     Dates: start: 20040121, end: 20040220
  2. FLUCONAZOLE [Concomitant]
  3. FAMVIR [Concomitant]
  4. SEPTRA [Concomitant]

REACTIONS (4)
  - ASTHENIA [None]
  - CHRONIC INFLAMMATORY DEMYELINATING POLYRADICULONEUROPATHY [None]
  - MUSCLE ATROPHY [None]
  - WEIGHT DECREASED [None]
